FAERS Safety Report 7391965-7 (Version None)
Quarter: 2011Q2

REPORT INFORMATION
  Report Type: 
  Country: None (occurrence: None)
  Receive Date: 20110404
  Receipt Date: 20110327
  Transmission Date: 20111010
  Serious: Yes (Other)
  Sender: FDA-Public Use
  Company Number: US-RB-023966-11

PATIENT

DRUGS (1)
  1. MUCINEX DM [Suspect]
     Route: 048

REACTIONS (1)
  - EPISTAXIS [None]
